FAERS Safety Report 5076212-3 (Version None)
Quarter: 2006Q3

REPORT INFORMATION
  Report Type: 
  Country: None (occurrence: None)
  Receive Date: 20060807
  Receipt Date: 20060726
  Transmission Date: 20061208
  Serious: Yes (Hospitalization, Other)
  Sender: FDA-Public Use
  Company Number: 2006-01939

PATIENT
  Age: 46 Year
  Sex: Male
  Weight: 66.7 kg

DRUGS (5)
  1. VELCADE [Suspect]
     Indication: COLON CANCER
     Dosage: 10.00 MG, INTRAVENOUS
     Route: 042
     Dates: start: 20060713, end: 20060713
  2. OXALIPLATIN [Concomitant]
  3. LEUCOVORIN CALCIUM [Concomitant]
  4. FLUOROURACIL [Concomitant]
  5. PERCOCET [Concomitant]

REACTIONS (8)
  - DIZZINESS [None]
  - DYSGRAPHIA [None]
  - GAIT DISTURBANCE [None]
  - HYPOAESTHESIA [None]
  - NEUROPATHY PERIPHERAL [None]
  - PAIN IN EXTREMITY [None]
  - VOMITING [None]
  - WRONG DRUG ADMINISTERED [None]
